FAERS Safety Report 9897164 (Version 1)
Quarter: 2014Q1

REPORT INFORMATION
  Report Type: Spontaneous
  Country: US (occurrence: US)
  Receive Date: 20140214
  Receipt Date: 20140214
  Transmission Date: 20141002
  Serious: Yes (Other)
  Sender: FDA-Public Use
  Company Number: US-BRISTOL-MYERS SQUIBB COMPANY-20141792

PATIENT
  Sex: 0

DRUGS (1)
  1. ABILIFY TABS 2 MG [Suspect]
     Indication: DEPRESSION

REACTIONS (1)
  - Mania [Unknown]
